FAERS Safety Report 5678855-2 (Version None)
Quarter: 2008Q1

REPORT INFORMATION
  Report Type: 
  Country: None (occurrence: None)
  Receive Date: 20080320
  Receipt Date: 20080220
  Transmission Date: 20080703
  Serious: Yes (Hospitalization, Other)
  Sender: FDA-Public Use
  Company Number: 2008S1002888

PATIENT
  Age: 18 Year
  Sex: Female

DRUGS (1)
  1. CITALOPRAM HYDROBROMIDE [Suspect]
     Indication: AFFECTIVE DISORDER
     Dosage: 1000 MG; ONCE ORAL, 1000 MG; TABLET; ORAL; ONCE
     Route: 048

REACTIONS (8)
  - CHEST PAIN [None]
  - CRYING [None]
  - ELECTROCARDIOGRAM QT PROLONGED [None]
  - HYPOKALAEMIA [None]
  - MALAISE [None]
  - OVERDOSE [None]
  - SUICIDE ATTEMPT [None]
  - TORSADE DE POINTES [None]
